FAERS Safety Report 19729132 (Version 2)
Quarter: 2021Q3

REPORT INFORMATION
  Report Type: Spontaneous
  Country: PL (occurrence: PL)
  Receive Date: 20210821
  Receipt Date: 20210906
  Transmission Date: 20211014
  Serious: Yes (Disabling, Other)
  Sender: FDA-Public Use
  Company Number: PL-AUROBINDO-AUR-APL-2021-035064

PATIENT
  Age: 68 Year
  Sex: Female

DRUGS (12)
  1. ALPRAZOLAM. [Suspect]
     Active Substance: ALPRAZOLAM
     Indication: DEPRESSION
     Dosage: 1 MILLIGRAM, ONCE A DAY (0.5 MILLIGRAM, BID)
     Route: 065
  2. CIPROFLOXACIN. [Suspect]
     Active Substance: CIPROFLOXACIN
     Indication: ARTHRITIS
     Dosage: 1000 MILLIGRAM, ONCE A DAY, (QD)
     Route: 048
  3. BROMFENAC [Concomitant]
     Active Substance: BROMFENAC SODIUM
     Indication: PRODUCT USED FOR UNKNOWN INDICATION
     Dosage: UNK
     Route: 047
  4. ALPRAZOLAM. [Suspect]
     Active Substance: ALPRAZOLAM
     Dosage: 0.5 MILLIGRAM, TWO TIMES A DAY (ALPRAZOLAM 2 X 0.5 MG SUSTAINED?RELEASE (SR) )
     Route: 065
  5. GENTAMICIN. [Suspect]
     Active Substance: GENTAMICIN
     Indication: PRODUCT USED FOR UNKNOWN INDICATION
     Dosage: UNK
     Route: 047
  6. CELECOXIB. [Suspect]
     Active Substance: CELECOXIB
     Indication: ARTHRITIS
     Dosage: 400 MILLIGRAM, ONCE A DAY (QD)
     Route: 065
  7. DULOXETINE. [Interacting]
     Active Substance: DULOXETINE
     Indication: DEPRESSION
     Dosage: 60 MILLIGRAM, ONCE A DAY (QD)
     Route: 065
  8. PREGABALIN. [Concomitant]
     Active Substance: PREGABALIN
     Indication: PAIN
     Dosage: UNK
     Route: 065
  9. METOPROLOL. [Interacting]
     Active Substance: METOPROLOL
     Indication: PALPITATIONS
  10. DEXAMETHASONE. [Concomitant]
     Active Substance: DEXAMETHASONE
     Indication: PRODUCT USED FOR UNKNOWN INDICATION
     Dosage: UNK
     Route: 047
  11. ETORICOXIB. [Concomitant]
     Active Substance: ETORICOXIB
     Indication: PAIN
     Dosage: UNK
     Route: 065
  12. METOPROLOL. [Interacting]
     Active Substance: METOPROLOL
     Indication: DEPRESSION
     Dosage: 100 MILLIGRAM, ONCE A DAY (QD) (METOPROLOL ZERO?ORDER KINETICS (ZOK) 100 MG/D)
     Route: 065

REACTIONS (13)
  - Hallucination, visual [Recovered/Resolved]
  - Drug interaction [Recovered/Resolved]
  - Drug level increased [Recovered/Resolved]
  - Drug ineffective [Recovered/Resolved]
  - Excessive eye blinking [Recovered/Resolved]
  - Thermal burns of eye [Recovered/Resolved]
  - Eye pain [Recovered/Resolved]
  - Hyperhidrosis [Recovered/Resolved]
  - Eye disorder [Recovered/Resolved]
  - Visual field defect [Recovered/Resolved]
  - Dyschromatopsia [Recovered/Resolved]
  - Visual impairment [Recovered/Resolved]
  - Eye irritation [Recovered/Resolved]
